FAERS Safety Report 16666870 (Version 1)
Quarter: 2019Q3

REPORT INFORMATION
  Report Type: Spontaneous
  Country: NL (occurrence: NL)
  Receive Date: 20190805
  Receipt Date: 20190805
  Transmission Date: 20191004
  Serious: Yes (Hospitalization, Other)
  Sender: FDA-Public Use
  Company Number: NL-ALEMBIC PHARMACUETICALS LIMITED-2019SCAL000498

PATIENT

DRUGS (1)
  1. FLUOXETINE HYDROCHLORIDE. [Suspect]
     Active Substance: FLUOXETINE HYDROCHLORIDE
     Indication: PRODUCT USED FOR UNKNOWN INDICATION
     Dosage: UNK
     Route: 064

REACTIONS (6)
  - Neonatal hypoxia [Recovering/Resolving]
  - Hypoventilation neonatal [Recovering/Resolving]
  - Foetal exposure during pregnancy [Unknown]
  - Congenital central hypoventilation syndrome [Recovering/Resolving]
  - Infantile apnoea [Recovering/Resolving]
  - Cyanosis neonatal [Recovering/Resolving]
